FAERS Safety Report 8597470-4 (Version None)
Quarter: 2012Q3

REPORT INFORMATION
  Report Type: 
  Country: None (occurrence: None)
  Receive Date: 20120816
  Receipt Date: 20120814
  Transmission Date: 20120928
  Serious: Yes (Other)
  Sender: FDA-Public Use
  Company Number: US-JNJFOC-20120712477

PATIENT

DRUGS (12)
  1. RITUXIMAB [Suspect]
     Indication: B-CELL LYMPHOMA
     Dosage: ON DAY 1 AS INFUSION
     Route: 042
  2. VINCRISTINE [Suspect]
     Indication: B-CELL LYMPHOMA
     Dosage: DAY 1-5, CAPPED AT 1.5 MG
     Route: 042
  3. PREDNISONE TAB [Suspect]
     Indication: NAUSEA
     Dosage: DAY 1-5
     Route: 048
  4. CYCLOPHOSPHAMIDE [Suspect]
     Indication: B-CELL LYMPHOMA
     Dosage: ON DAY 1 EVERY 21 DAY CYCLE
     Route: 042
  5. DOXORUBICIN HCL [Suspect]
     Dosage: ADMINISTERED OVER 3 TO 5 MINUTES; ON DAY 1 EVERY 21 DAY CYCLE
     Route: 042
  6. DIPHENHYDRAMINE HYDROCHLORIDE [Concomitant]
     Indication: PROPHYLAXIS
     Route: 048
  7. DOXORUBICIN HCL [Suspect]
     Indication: B-CELL LYMPHOMA
     Dosage: ADMINISTERED OVER 3 TO 5 MINUTES; ON DAY 1 EVERY 21 DAY CYCLE
     Route: 042
  8. PREDNISONE TAB [Suspect]
     Indication: B-CELL LYMPHOMA
     Dosage: DAY 1-5
     Route: 048
  9. ACETAMINOPHEN [Concomitant]
     Indication: PROPHYLAXIS
     Route: 048
  10. PREDNISONE TAB [Concomitant]
     Dosage: DAY 1-5
     Route: 048
  11. VELCADE [Suspect]
     Indication: B-CELL LYMPHOMA
     Dosage: ON DAY 1AS INTRAVENOUS PUSH AND REPEATED ON DAY 8 OF EACH 21 DAY CYCLE
     Route: 042
  12. ONDANSETRON [Concomitant]
     Indication: NAUSEA
     Route: 042

REACTIONS (1)
  - SENSORIMOTOR DISORDER [None]
